FAERS Safety Report 6184559-2 (Version None)
Quarter: 2009Q2

REPORT INFORMATION
  Report Type: 
  Country: None (occurrence: None)
  Receive Date: 20090508
  Receipt Date: 20050114
  Transmission Date: 20091009
  Serious: Yes (Death, Hospitalization)
  Sender: FDA-Public Use
  Company Number: FR-MERCK-0905USA00423

PATIENT
  Sex: Female

DRUGS (13)
  1. SUSTIVA [Suspect]
     Route: 048
     Dates: start: 19990601
  2. ZERIT [Suspect]
     Indication: HIV TEST POSITIVE
     Route: 048
  3. VIDEX [Suspect]
     Indication: HIV TEST POSITIVE
     Route: 048
  4. COMBIVIR [Suspect]
     Route: 048
     Dates: start: 19990601
  5. CRIXIVAN [Suspect]
     Route: 048
     Dates: start: 19990601
  6. NORVIR [Suspect]
     Route: 042
     Dates: start: 20000306, end: 20000306
  7. VIRAMUNE [Suspect]
     Route: 042
     Dates: start: 20000306, end: 20000306
  8. INVIRASE [Suspect]
     Indication: HIV INFECTION
     Route: 065
  9. BACTRIM [Concomitant]
     Route: 065
  10. GYNO-PEVARYL [Concomitant]
     Route: 065
  11. NICARDIPINE HCL [Concomitant]
     Route: 065
  12. ALBUTEROL [Concomitant]
     Route: 065
  13. SPASFON [Concomitant]
     Route: 065

REACTIONS (5)
  - DEATH [None]
  - HYPERTENSION [None]
  - PREGNANCY [None]
  - PREMATURE LABOUR [None]
  - RENAL COLIC [None]
